FAERS Safety Report 5102573-2 (Version None)
Quarter: 2006Q3

REPORT INFORMATION
  Report Type: 
  Country: None (occurrence: None)
  Receive Date: 20060912
  Receipt Date: 20060901
  Transmission Date: 20061208
  Serious: Yes (Death)
  Sender: FDA-Public Use
  Company Number: JP-BRISTOL-MYERS SQUIBB COMPANY-13502547

PATIENT
  Age: 84 Year
  Sex: Male

DRUGS (22)
  1. MITOMYCIN-C BULK POWDER [Suspect]
     Indication: ADENOCARCINOMA PANCREAS
  2. RADIATION THERAPY [Suspect]
     Indication: ADENOCARCINOMA PANCREAS
     Dates: start: 20050613
  3. FLUOROURACIL [Suspect]
     Indication: ADENOCARCINOMA PANCREAS
     Route: 013
     Dates: start: 20051004, end: 20051109
  4. PHARMORUBICIN [Suspect]
     Indication: ADENOCARCINOMA PANCREAS
  5. NEU-UP [Suspect]
     Indication: ADENOCARCINOMA PANCREAS
     Route: 058
  6. GRAN [Concomitant]
     Route: 058
     Dates: start: 20050921, end: 20050927
  7. PENTCILLIN [Concomitant]
     Route: 042
     Dates: start: 20050923, end: 20050927
  8. IMIPENEM + CILASTATIN [Concomitant]
  9. FERROMIA [Concomitant]
     Route: 048
     Dates: start: 20050714, end: 20060120
  10. MUCOSTA [Concomitant]
     Dates: start: 20050714, end: 20050925
  11. MUCODYNE [Concomitant]
     Route: 048
     Dates: start: 20051218, end: 20060120
  12. TAKEPRON [Concomitant]
     Dates: start: 20050714, end: 20050925
  13. NU-LOTAN [Concomitant]
     Dates: start: 20050714, end: 20050925
  14. FLIVAS [Concomitant]
     Route: 048
     Dates: start: 20050714, end: 20060120
  15. UBRETID [Concomitant]
     Dates: start: 20050714, end: 20060120
  16. FLOMOX [Concomitant]
     Dates: start: 20051124, end: 20051128
  17. FLOMOX [Concomitant]
     Dates: start: 20051224, end: 20051227
  18. LOXONIN [Concomitant]
     Route: 048
     Dates: start: 20051124, end: 20051128
  19. RESPLEN [Concomitant]
     Route: 048
     Dates: start: 20051210, end: 20051216
  20. ROCEPHIN [Concomitant]
     Route: 042
     Dates: start: 20050920, end: 20050920
  21. ROCEPHIN [Concomitant]
     Route: 042
     Dates: start: 20050921, end: 20050921
  22. TIENAM [Concomitant]
     Route: 042
     Dates: start: 20050104, end: 20050120

REACTIONS (2)
  - ACUTE MYELOID LEUKAEMIA [None]
  - TREATMENT RELATED SECONDARY MALIGNANCY [None]
